FAERS Safety Report 10753711 (Version 1)
Quarter: 2015Q1

REPORT INFORMATION
  Report Type: Spontaneous
  Country: US (occurrence: None)
  Receive Date: 20150129
  Receipt Date: 20150129
  Transmission Date: 20150721
  Serious: No
  Sender: FDA-Public Use
  Company Number: None

PATIENT
  Age: 04 Year
  Sex: Male

DRUGS (1)
  1. BIAXIN [Suspect]
     Active Substance: CLARITHROMYCIN

REACTIONS (1)
  - Depression [None]
